FAERS Safety Report 18707113 (Version 1)
Quarter: 2021Q1

REPORT INFORMATION
  Report Type: Spontaneous
  Country: FR (occurrence: FR)
  Receive Date: 20210106
  Receipt Date: 20210106
  Transmission Date: 20210419
  Serious: Yes (Other)
  Sender: FDA-Public Use
  Company Number: FR-BRISTOL-MYERS SQUIBB COMPANY-BMS-2020-112530

PATIENT
  Age: 23 Year
  Sex: Female
  Weight: 71 kg

DRUGS (2)
  1. SEASONIQUE [Concomitant]
     Active Substance: ETHINYL ESTRADIOL\LEVONORGESTREL
     Indication: CONTRACEPTION
     Dosage: 1 DOSAGE FORM, DAILY (UNKNOWN FREQUENCY)
     Route: 048
     Dates: start: 2005
  2. ELIQUIS [Suspect]
     Active Substance: APIXABAN
     Indication: DEEP VEIN THROMBOSIS
     Dosage: 2 DOSAGE FORM, DAILY (UNKNOWN FREQUENCY)
     Route: 048
     Dates: start: 20201012

REACTIONS (1)
  - Hypnopompic hallucination [Recovering/Resolving]

NARRATIVE: CASE EVENT DATE: 20201104
